FAERS Safety Report 25260208 (Version 6)
Quarter: 2025Q4

REPORT INFORMATION
  Report Type: Report from Study
  Country: US (occurrence: US)
  Receive Date: 20250501
  Receipt Date: 20251127
  Transmission Date: 20260117
  Serious: No
  Sender: ABBVIE
  Company Number: US-ABBVIE-6221910

PATIENT
  Age: 65 Year
  Sex: Female
  Weight: 109 kg

DRUGS (4)
  1. VRAYLAR [Suspect]
     Active Substance: CARIPRAZINE
     Indication: Anxiety
     Dosage: FORM STRENGTH: 4.5 MILLIGRAM
     Route: 048
     Dates: start: 202504, end: 202508
  2. VRAYLAR [Suspect]
     Active Substance: CARIPRAZINE
     Indication: Anxiety
     Dosage: FORM STRENGTH: 1.5 MILLIGRAM
     Route: 048
     Dates: start: 2023, end: 2024
  3. VRAYLAR [Suspect]
     Active Substance: CARIPRAZINE
     Indication: Anxiety
     Dosage: FORM STRENGTH: 3 MILLIGRAM
     Route: 048
     Dates: start: 2024, end: 202503
  4. VRAYLAR [Suspect]
     Active Substance: CARIPRAZINE
     Indication: Anxiety
     Dosage: FORM STRENGTH 6 MILLIGRAM
     Route: 048
     Dates: start: 202508

REACTIONS (4)
  - Drug ineffective [Not Recovered/Not Resolved]
  - Sleep terror [Recovering/Resolving]
  - Nightmare [Recovering/Resolving]
  - Lacrimation increased [Not Recovered/Not Resolved]

NARRATIVE: CASE EVENT DATE: 20230101
